FAERS Safety Report 19218223 (Version 3)
Quarter: 2023Q2

REPORT INFORMATION
  Report Type: Report from Study
  Country: BG (occurrence: BG)
  Receive Date: 20210505
  Receipt Date: 20230615
  Transmission Date: 20230721
  Serious: Yes (Death, Hospitalization)
  Sender: FDA-Public Use
  Company Number: BG-TEVA-2021-BG-1899276

PATIENT
  Age: 74 Year
  Sex: Male
  Weight: 60 kg

DRUGS (6)
  1. PEMETREXED [Suspect]
     Active Substance: PEMETREXED
     Indication: Non-small cell lung cancer
     Dosage: DAILY DOSE- 23.8095 MG/M2
     Dates: start: 20210106, end: 20210106
  2. PEMETREXED [Suspect]
     Active Substance: PEMETREXED
     Dates: start: 20210127, end: 20210127
  3. PEMETREXED [Suspect]
     Active Substance: PEMETREXED
     Dates: start: 20210222, end: 20210222
  4. CARBOPLATIN [Suspect]
     Active Substance: CARBOPLATIN
     Indication: Non-small cell lung cancer
     Dosage: AUC 5
     Dates: start: 20210106, end: 20210106
  5. CARBOPLATIN [Suspect]
     Active Substance: CARBOPLATIN
     Dosage: AUC 5
     Dates: start: 20210127, end: 20210127
  6. CARBOPLATIN [Suspect]
     Active Substance: CARBOPLATIN
     Dosage: AUC 5
     Dates: start: 20210222, end: 20210222

REACTIONS (3)
  - Death [Fatal]
  - Deep vein thrombosis [Not Recovered/Not Resolved]
  - Anaemia [Not Recovered/Not Resolved]

NARRATIVE: CASE EVENT DATE: 20210304
